FAERS Safety Report 12596055 (Version 2)
Quarter: 2017Q1

REPORT INFORMATION
  Report Type: Report from Study
  Country: US (occurrence: US)
  Receive Date: 20160726
  Receipt Date: 20170126
  Transmission Date: 20170428
  Serious: No
  Sender: FDA-Public Use
  Company Number: US-AMGEN-USASL2016067163

PATIENT
  Age: 84 Year
  Sex: Female

DRUGS (1)
  1. KYPROLIS [Suspect]
     Active Substance: CARFILZOMIB
     Indication: PRODUCT USED FOR UNKNOWN INDICATION
     Dosage: MONDAYS AND TUESDAYS TWICE A WEEK EVERY OTHER WEEK.
     Route: 065
     Dates: start: 2014

REACTIONS (5)
  - Inappropriate schedule of drug administration [Unknown]
  - Chest discomfort [Unknown]
  - Back pain [Unknown]
  - Musculoskeletal discomfort [Unknown]
  - Chest pain [Unknown]
